FAERS Safety Report 10761291 (Version 1)
Quarter: 2015Q1

REPORT INFORMATION
  Report Type: Spontaneous
  Country: US (occurrence: None)
  Receive Date: 20150203
  Receipt Date: 20150203
  Transmission Date: 20150721
  Serious: Yes (Other)
  Sender: FDA-Public Use
  Company Number: None

PATIENT
  Age: 10 Year
  Sex: Female
  Weight: 54.43 kg

DRUGS (1)
  1. CHLORHEXIDINE [Suspect]
     Active Substance: CHLORHEXIDINE
     Indication: LIMB OPERATION
     Dates: start: 20150116

REACTIONS (4)
  - Application site pruritus [None]
  - Rash erythematous [None]
  - Skin discolouration [None]
  - Hypersensitivity [None]

NARRATIVE: CASE EVENT DATE: 20150122
